FAERS Safety Report 25921797 (Version 3)
Quarter: 2025Q4

REPORT INFORMATION
  Report Type: Report from Study
  Country: EU (occurrence: EU)
  Receive Date: 20251014
  Receipt Date: 20251204
  Transmission Date: 20260117
  Serious: Yes (Other)
  Sender: BIOGEN
  Company Number: EU-BIOGEN-2024BI01273913

PATIENT
  Age: 41 Year
  Sex: Male
  Weight: 84 kg

DRUGS (2)
  1. OMAVELOXOLONE [Suspect]
     Active Substance: OMAVELOXOLONE
     Indication: Friedreich^s ataxia
     Dosage: DOSAGE TEXT:150MG ONCE PER DAY (3 CAPSULES OF 50MG) PLANNED DURATION: SINGLE ADMINISTRATION
     Dates: start: 202402
  2. IDEBENONE [Concomitant]
     Active Substance: IDEBENONE
     Indication: Friedreich^s ataxia
     Dates: start: 19991011

REACTIONS (1)
  - Rash erythematous [Recovering/Resolving]

NARRATIVE: CASE EVENT DATE: 20240101
